FAERS Safety Report 5200182-8 (Version None)
Quarter: 2006Q4

REPORT INFORMATION
  Report Type: 
  Country: None (occurrence: None)
  Receive Date: 20061016
  Receipt Date: 20060726
  Transmission Date: 20070319
  Serious: No
  Sender: FDA-Public Use
  Company Number: 2006SP002823

PATIENT
  Age: 45 Year
  Sex: Female
  Weight: 81.6475 kg

DRUGS (4)
  1. LUNESTA [Suspect]
     Indication: INSOMNIA
     Dosage: UNKNOWN;1X;ORAL
     Route: 048
     Dates: start: 20060701, end: 20060701
  2. LUNESTA [Suspect]
     Indication: INSOMNIA
     Dosage: UNKNOWN;1X;ORAL
     Route: 048
     Dates: start: 20060701, end: 20060701
  3. PERCOCET [Concomitant]
  4. NEURONTIN [Concomitant]

REACTIONS (2)
  - INSOMNIA [None]
  - PARASOMNIA [None]
